FAERS Safety Report 8216938-3 (Version None)
Quarter: 2012Q1

REPORT INFORMATION
  Report Type: 
  Country: None (occurrence: None)
  Receive Date: 20120319
  Receipt Date: 20120312
  Transmission Date: 20120608
  Serious: Yes (Death)
  Sender: FDA-Public Use
  Company Number: CL-BRISTOL-MYERS SQUIBB COMPANY-16449787

PATIENT
  Age: 60 Year

DRUGS (1)
  1. IXEMPRA KIT [Suspect]

REACTIONS (1)
  - DEATH [None]
